FAERS Safety Report 19678189 (Version 1)
Quarter: 2021Q3

REPORT INFORMATION
  Report Type: Spontaneous
  Country: US (occurrence: US)
  Receive Date: 20210810
  Receipt Date: 20210810
  Transmission Date: 20211014
  Serious: No
  Sender: FDA-Public Use
  Company Number: US-DRREDDYS-SPO/USA/21/0138549

PATIENT
  Age: 18 Year
  Sex: Male

DRUGS (1)
  1. ZENATANE [Suspect]
     Active Substance: ISOTRETINOIN
     Indication: PRODUCT USED FOR UNKNOWN INDICATION
     Dosage: RMA ISSUE DATE:27?MARCH?2021 3:10:26 PM 24?APRIL?2021 2:12:23 PM 25? MAY?2021 11:07:18 AM

REACTIONS (1)
  - Therapy cessation [Unknown]
